FAERS Safety Report 4960419-7 (Version None)
Quarter: 2006Q2

REPORT INFORMATION
  Report Type: 
  Country: None (occurrence: None)
  Receive Date: 20060403
  Receipt Date: 20060322
  Transmission Date: 20061013
  Serious: Yes (Death, Other)
  Sender: FDA-Public Use
  Company Number: JP-BRISTOL-MYERS SQUIBB COMPANY-13325519

PATIENT
  Age: 42 Year
  Sex: Male

DRUGS (3)
  1. MAXIPIME [Suspect]
     Indication: FEBRILE NEUTROPENIA
     Dates: start: 20050210, end: 20050213
  2. DIFLUCAN [Concomitant]
     Route: 048
     Dates: start: 20050111, end: 20050221
  3. GRAN [Concomitant]
     Dates: start: 20050206, end: 20050215

REACTIONS (7)
  - ALANINE AMINOTRANSFERASE INCREASED [None]
  - ASPARTATE AMINOTRANSFERASE INCREASED [None]
  - BLOOD LACTATE DEHYDROGENASE INCREASED [None]
  - DEATH [None]
  - HEPATIC FUNCTION ABNORMAL [None]
  - HISTIOCYTOSIS HAEMATOPHAGIC [None]
  - MULTI-ORGAN FAILURE [None]
